FAERS Safety Report 21778840 (Version 3)
Quarter: 2022Q4

REPORT INFORMATION
  Report Type: Report from Study
  Country: US (occurrence: US)
  Receive Date: 20221226
  Receipt Date: 20221228
  Transmission Date: 20230113
  Serious: Yes (Other)
  Sender: FDA-Public Use
  Company Number: US-ABBVIE-4249489

PATIENT
  Sex: Male

DRUGS (1)
  1. VENCLEXTA [Suspect]
     Active Substance: VENETOCLAX
     Indication: Acute myeloid leukaemia
     Dosage: FORM STRENGTH: 100 MILLIGRAM/DAILY 14 DAYS EACH CHEMOTHERAPY CYCLE
     Route: 048

REACTIONS (8)
  - Renal failure [Unknown]
  - Confusional state [Unknown]
  - Hepatic failure [Unknown]
  - Terminal state [Unknown]
  - Illness [Unknown]
  - Cardiac failure [Unknown]
  - Multiple organ dysfunction syndrome [Unknown]
  - Off label use [Unknown]
